FAERS Safety Report 24858933 (Version 1)
Quarter: 2025Q1

REPORT INFORMATION
  Report Type: Report from Study
  Country: US (occurrence: US)
  Receive Date: 20250118
  Receipt Date: 20250118
  Transmission Date: 20250409
  Serious: Yes (Hospitalization)
  Sender: ABBVIE
  Company Number: US-ABBVIE-6089517

PATIENT
  Sex: Male

DRUGS (1)
  1. VENCLEXTA [Suspect]
     Active Substance: VENETOCLAX
     Indication: Product used for unknown indication
     Dosage: VENCLEXTA DOSE - 200 MG ORALLY ONCE DAILY FOR 14 DAYS ON THEN 14 DAYS OFF EACH 28 DAY CYCLE
     Route: 048

REACTIONS (2)
  - Influenza [Unknown]
  - Sepsis [Unknown]
